FAERS Safety Report 21974874 (Version 2)
Quarter: 2023Q1

REPORT INFORMATION
  Report Type: Spontaneous
  Country: US (occurrence: US)
  Receive Date: 20230209
  Receipt Date: 20230216
  Transmission Date: 20230417
  Serious: No
  Sender: FDA-Public Use
  Company Number: US-Calliditas-2023CAL00123

PATIENT
  Age: 59 Year
  Sex: Male

DRUGS (13)
  1. TARPEYO [Suspect]
     Active Substance: BUDESONIDE
     Indication: Haematuria
     Dosage: 16 MG (4 MG CAPSULES) ONCE DAILY
     Route: 048
     Dates: start: 20221030
  2. AMIODARONE [Concomitant]
     Active Substance: AMIODARONE
  3. AMLODIPINE [Concomitant]
     Active Substance: AMLODIPINE BESYLATE
  4. FLUOXETINE [Concomitant]
     Active Substance: FLUOXETINE HYDROCHLORIDE
  5. LASIX [Concomitant]
     Active Substance: FUROSEMIDE
  6. LOSARTAN [Concomitant]
     Active Substance: LOSARTAN
  7. POTASSIUM [Concomitant]
     Active Substance: POTASSIUM
  8. VASCEPA [Concomitant]
     Active Substance: ICOSAPENT ETHYL
  9. WARFARIN [Concomitant]
     Active Substance: WARFARIN
  10. LUMIGAN [Concomitant]
     Active Substance: BIMATOPROST
  11. IRON [Concomitant]
     Active Substance: IRON
  12. VITAMINS [Concomitant]
     Active Substance: VITAMINS
  13. MINERALS\VITAMINS [Concomitant]
     Active Substance: MINERALS\VITAMINS

REACTIONS (1)
  - Drug ineffective [Not Recovered/Not Resolved]
